FAERS Safety Report 6871699-5 (Version None)
Quarter: 2010Q3

REPORT INFORMATION
  Report Type: 
  Country: None (occurrence: None)
  Receive Date: 20100723
  Receipt Date: 20100706
  Transmission Date: 20110219
  Serious: Yes (Hospitalization)
  Sender: FDA-Public Use
  Company Number: A0796428A

PATIENT
  Age: 42 Year
  Sex: Male

DRUGS (5)
  1. AVANDIA [Suspect]
     Dosage: 8MG UNKNOWN
     Route: 048
     Dates: start: 20010101, end: 20030101
  2. GLUCOVANCE [Concomitant]
  3. LOPRESSOR [Concomitant]
  4. LIPITOR [Concomitant]
  5. ZESTRIL [Concomitant]

REACTIONS (3)
  - CARDIAC DISORDER [None]
  - MYOCARDIAL INFARCTION [None]
  - THROMBOSIS [None]
